FAERS Safety Report 8421287-4 (Version None)
Quarter: 2012Q2

REPORT INFORMATION
  Report Type: 
  Country: None (occurrence: None)
  Receive Date: 20120608
  Receipt Date: 20120606
  Transmission Date: 20120825
  Serious: Yes (Other)
  Sender: FDA-Public Use
  Company Number: BR-JNJFOC-20120521220

PATIENT
  Age: 51 Year
  Sex: Female

DRUGS (6)
  1. ACETAMINOPHEN [Suspect]
     Route: 065
  2. ACETAMINOPHEN [Suspect]
     Indication: PAIN
     Route: 065
     Dates: start: 20070101, end: 20120501
  3. PREDNISONE TAB [Concomitant]
     Indication: PAIN
     Route: 065
     Dates: start: 20070101
  4. REMICADE [Suspect]
     Indication: RHEUMATOID ARTHRITIS
     Route: 042
     Dates: start: 20120201
  5. ALL OTHER THERAPEUTIC PRODUCTS [Concomitant]
     Indication: OESOPHAGITIS
     Route: 065
  6. ALL OTHER THERAPEUTIC PRODUCTS [Concomitant]
     Indication: GASTRITIS
     Route: 065

REACTIONS (10)
  - FATIGUE [None]
  - OSTEOPENIA [None]
  - RED BLOOD CELL SEDIMENTATION RATE ABNORMAL [None]
  - DYSPNOEA [None]
  - HYPERSENSITIVITY [None]
  - OROPHARYNGEAL PAIN [None]
  - PRURITUS GENERALISED [None]
  - DIZZINESS [None]
  - FLUID RETENTION [None]
  - OEDEMA PERIPHERAL [None]
